FAERS Safety Report 8448964-3 (Version None)
Quarter: 2012Q2

REPORT INFORMATION
  Report Type: 
  Country: None (occurrence: None)
  Receive Date: 20120619
  Receipt Date: 20120615
  Transmission Date: 20120825
  Serious: Yes (Death, Hospitalization)
  Sender: FDA-Public Use
  Company Number: MW-ABBOTT-12P-100-0946365-00

PATIENT
  Age: 26 Year
  Sex: Female

DRUGS (2)
  1. UNSPECIFIED NUCLEOSIDE REVERSE TRANSCRIPTASE INHIBITORS [Concomitant]
     Indication: PRODUCT USED FOR UNKNOWN INDICATION
  2. LOPINAVIR/RITONAVIR [Suspect]
     Indication: HIV INFECTION
     Route: 048
     Dates: start: 20110401

REACTIONS (2)
  - MENINGITIS TUBERCULOUS [None]
  - ANAEMIA [None]
